FAERS Safety Report 4946610-4 (Version None)
Quarter: 2006Q1

REPORT INFORMATION
  Report Type: 
  Country: None (occurrence: None)
  Receive Date: 20060317
  Receipt Date: 20060310
  Transmission Date: 20060701
  Serious: Yes (Hospitalization)
  Sender: FDA-Public Use
  Company Number: IE-GLAXOSMITHKLINE-B0416026A

PATIENT
  Age: 75 Year
  Sex: Male

DRUGS (2)
  1. WARFARIN [Suspect]
     Indication: PULMONARY EMBOLISM
     Route: 065
  2. AMOXICILLIN + CLAVULANATE POTASSIUM [Suspect]
     Indication: LOWER RESPIRATORY TRACT INFECTION
     Route: 065

REACTIONS (6)
  - ABDOMINAL HAEMATOMA [None]
  - ABDOMINAL PAIN LOWER [None]
  - ABDOMINAL WALL MASS [None]
  - DRUG INTERACTION [None]
  - INTERNATIONAL NORMALISED RATIO INCREASED [None]
  - MUSCLE HAEMORRHAGE [None]
